FAERS Safety Report 7789730-1 (Version None)
Quarter: 2011Q3

REPORT INFORMATION
  Report Type: 
  Country: None (occurrence: None)
  Receive Date: 20110930
  Receipt Date: 20101005
  Transmission Date: 20111222
  Serious: No
  Sender: FDA-Public Use
  Company Number: US-ASTRAZENECA-2010SE45393

PATIENT
  Age: 75 Year
  Sex: Female
  Weight: 72.6 kg

DRUGS (3)
  1. LIPITOR [Concomitant]
     Indication: BLOOD CHOLESTEROL INCREASED
  2. ARIMIDEX [Suspect]
     Indication: BREAST CANCER
     Route: 048
     Dates: start: 20030101, end: 20100901
  3. ANASTROZOLE [Suspect]
     Route: 065

REACTIONS (6)
  - LIP SWELLING [None]
  - URTICARIA [None]
  - PRURITUS [None]
  - BODY HEIGHT DECREASED [None]
  - RASH [None]
  - DRUG DOSE OMISSION [None]
